FAERS Safety Report 4726437-9 (Version None)
Quarter: 2005Q3

REPORT INFORMATION
  Report Type: 
  Country: None (occurrence: None)
  Receive Date: 20050726
  Receipt Date: 20050427
  Transmission Date: 20060218
  Serious: Yes (Hospitalization)
  Sender: FDA-Public Use
  Company Number: REM_00111_2005

PATIENT
  Age: 26 Year
  Sex: Female
  Weight: 56 kg

DRUGS (14)
  1. REMODULIN [Suspect]
     Indication: PULMONARY HYPERTENSION
     Dosage: 22 NG/KG/MIN CONTINUOUS SC
     Route: 058
     Dates: start: 20050318, end: 20050415
  2. REMODULIN [Suspect]
     Indication: PULMONARY HYPERTENSION
     Dosage: 20 NG/KG/MIN CONTINUOUS SC
     Route: 058
     Dates: start: 20050420
  3. DIGOXIN [Concomitant]
  4. ALDACTONE [Concomitant]
  5. AMITRIPTYLINE 2% [Concomitant]
  6. CLONIDINE [Concomitant]
  7. GABAPENTIN 6% [Concomitant]
  8. KETAMINE 5% [Concomitant]
  9. KETOPROFEN 10% [Concomitant]
  10. LIDOCAINE 5% [Concomitant]
  11. LOPERAMIDE HCL [Concomitant]
  12. PROTONIX [Concomitant]
  13. NASACORT AQ [Concomitant]
  14. EXTRA STRENGTH TYLENOL [Concomitant]

REACTIONS (4)
  - ANXIETY [None]
  - DYSPNOEA [None]
  - PALLOR [None]
  - VOMITING [None]
